FAERS Safety Report 5115270-4 (Version None)
Quarter: 2006Q3

REPORT INFORMATION
  Report Type: 
  Country: None (occurrence: None)
  Receive Date: 20060926
  Receipt Date: 20060922
  Transmission Date: 20061208
  Serious: Yes (Hospitalization)
  Sender: FDA-Public Use
  Company Number: 200617764US

PATIENT
  Age: 44 Year
  Sex: Female

DRUGS (10)
  1. AVANDAMET [Suspect]
     Route: 048
     Dates: start: 20060628
  2. LANTUS [Suspect]
     Dosage: 37U PER DAY
     Route: 058
     Dates: start: 19990101, end: 20060627
  3. BYETTA [Suspect]
     Route: 058
     Dates: start: 20060628, end: 20060702
  4. QUINAPRIL [Concomitant]
  5. CRESTOR [Concomitant]
  6. PAXIL [Concomitant]
  7. ZYRTEC [Concomitant]
  8. PRILOSEC [Concomitant]
  9. PANTOPRAZOLE SODIUM [Concomitant]
  10. FLUTICASONE PROPIONATE [Concomitant]

REACTIONS (7)
  - ADVERSE DRUG REACTION [None]
  - DIABETIC KETOACIDOSIS [None]
  - ERYTHEMA [None]
  - MALAISE [None]
  - PRURITUS [None]
  - SWELLING [None]
  - URTICARIA [None]
